FAERS Safety Report 21784347 (Version 1)
Quarter: 2022Q4

REPORT INFORMATION
  Report Type: Report from Study
  Country: US (occurrence: US)
  Receive Date: 20221227
  Receipt Date: 20221227
  Transmission Date: 20230113
  Serious: No
  Sender: FDA-Public Use
  Company Number: US-ABBVIE-4250747

PATIENT
  Sex: Male

DRUGS (1)
  1. VENCLEXTA [Suspect]
     Active Substance: VENETOCLAX
     Indication: Chronic lymphocytic leukaemia
     Dosage: TAKE 4 TABLETS BY MOUTH ONCE DAILY WITH FOOD AND A FULL GLASS OF WATER (KEEP IN ORIGINAL BOTTLE)
     Route: 048
     Dates: start: 20221115

REACTIONS (5)
  - Nasopharyngitis [Unknown]
  - Headache [Unknown]
  - Influenza [Unknown]
  - Oropharyngeal pain [Unknown]
  - Pyrexia [Unknown]
